FAERS Safety Report 6141882-5 (Version None)
Quarter: 2009Q2

REPORT INFORMATION
  Report Type: 
  Country: None (occurrence: None)
  Receive Date: 20090401
  Receipt Date: 20090401
  Transmission Date: 20091009
  Serious: Yes (Other)
  Sender: FDA-Public Use
  Company Number: None

PATIENT
  Age: 21 Year
  Sex: Female
  Weight: 102.0593 kg

DRUGS (1)
  1. IMPANON IMPLANT ORGANON LABORATORIES [Suspect]
     Indication: PREGNANCY
     Dosage: 68 MG EVERY 3 YEARS SUBDERMAL
     Route: 059
     Dates: start: 20080919, end: 20090326

REACTIONS (2)
  - ABDOMINAL PAIN UPPER [None]
  - MENORRHAGIA [None]
